FAERS Safety Report 7200277-3 (Version None)
Quarter: 2010Q4

REPORT INFORMATION
  Report Type: 
  Country: None (occurrence: None)
  Receive Date: 20101228
  Receipt Date: 20101216
  Transmission Date: 20110411
  Serious: Yes (Other)
  Sender: FDA-Public Use
  Company Number: B0683617A

PATIENT
  Sex: Female

DRUGS (10)
  1. PAXIL [Suspect]
     Indication: DEPRESSION
     Dosage: 20MG PER DAY
     Route: 048
  2. LIVALO [Concomitant]
     Dosage: 1IUAX PER DAY
     Route: 048
     Dates: start: 20101101
  3. ATELEC [Concomitant]
     Indication: HYPERTENSION
     Dosage: 1IUAX PER DAY
     Route: 048
     Dates: start: 20101101
  4. SIGMART [Concomitant]
     Indication: ARRHYTHMIA
     Dosage: 3IUAX PER DAY
     Route: 048
     Dates: start: 20101101
  5. NORVASC [Concomitant]
     Indication: HYPERTENSION
     Dosage: 1IUAX PER DAY
     Route: 048
     Dates: start: 20101101
  6. MYSLEE [Concomitant]
     Indication: INSOMNIA
     Dosage: 1IUAX PER DAY
     Route: 048
     Dates: start: 20101101
  7. ROHYPNOL [Concomitant]
     Indication: DEPRESSION
     Dosage: 1IUAX PER DAY
     Route: 048
     Dates: end: 20101101
  8. CRAVIT [Concomitant]
     Indication: ENTEROCOLITIS
     Dosage: 1IUAX PER DAY
     Route: 048
     Dates: start: 20101101
  9. BIOFERMIN [Concomitant]
     Indication: ENTEROCOLITIS
     Dosage: 3G PER DAY
     Route: 048
     Dates: start: 20101101
  10. OMEPRAL [Concomitant]
     Indication: ENTEROCOLITIS
     Dosage: 1IUAX PER DAY
     Route: 048
     Dates: start: 20101101

REACTIONS (32)
  - AZOTAEMIA [None]
  - BLOOD ALKALINE PHOSPHATASE INCREASED [None]
  - BLOOD CALCIUM DECREASED [None]
  - BLOOD CHLORIDE ABNORMAL [None]
  - BLOOD CREATINE PHOSPHOKINASE INCREASED [None]
  - BLOOD CREATININE INCREASED [None]
  - BLOOD GLUCOSE INCREASED [None]
  - BLOOD LACTATE DEHYDROGENASE INCREASED [None]
  - BLOOD POTASSIUM ABNORMAL [None]
  - BLOOD UREA INCREASED [None]
  - BLOOD URIC ACID INCREASED [None]
  - C-REACTIVE PROTEIN INCREASED [None]
  - CREATININE RENAL CLEARANCE DECREASED [None]
  - DIARRHOEA [None]
  - DRUG WITHDRAWAL SYNDROME [None]
  - EATING DISORDER [None]
  - ENTERITIS [None]
  - GAMMA-GLUTAMYLTRANSFERASE INCREASED [None]
  - GLOMERULAR FILTRATION RATE DECREASED [None]
  - HAEMATOCRIT DECREASED [None]
  - HAEMOGLOBIN DECREASED [None]
  - IRRITABILITY [None]
  - LYMPHOCYTE PERCENTAGE DECREASED [None]
  - MALAISE [None]
  - MEAN CELL VOLUME INCREASED [None]
  - METABOLIC ACIDOSIS [None]
  - NAUSEA [None]
  - NEUTROPHIL PERCENTAGE INCREASED [None]
  - RED BLOOD CELL COUNT DECREASED [None]
  - RENAL FAILURE [None]
  - VOMITING [None]
  - WHITE BLOOD CELL COUNT INCREASED [None]
